FAERS Safety Report 24093113 (Version 1)
Quarter: 2024Q3

REPORT INFORMATION
  Report Type: Spontaneous
  Country: GB (occurrence: GB)
  Receive Date: 20240715
  Receipt Date: 20240715
  Transmission Date: 20241016
  Serious: Yes (Other)
  Sender: TEVA
  Company Number: None

PATIENT
  Sex: Female

DRUGS (3)
  1. CLARITHROMYCIN\LANSOPRAZOLE\METRONIDAZOLE [Suspect]
     Active Substance: CLARITHROMYCIN\LANSOPRAZOLE\METRONIDAZOLE
     Indication: Product used for unknown indication
     Route: 065
  2. CLARITHROMYCIN\LANSOPRAZOLE\METRONIDAZOLE [Suspect]
     Active Substance: CLARITHROMYCIN\LANSOPRAZOLE\METRONIDAZOLE
     Indication: Product used for unknown indication
     Route: 065
  3. CLARITHROMYCIN\LANSOPRAZOLE\METRONIDAZOLE [Suspect]
     Active Substance: CLARITHROMYCIN\LANSOPRAZOLE\METRONIDAZOLE
     Indication: Product used for unknown indication
     Route: 065

REACTIONS (3)
  - Myalgia [Not Recovered/Not Resolved]
  - Chromaturia [Recovering/Resolving]
  - Muscular weakness [Not Recovered/Not Resolved]
